FAERS Safety Report 6878630-7 (Version None)
Quarter: 2010Q3

REPORT INFORMATION
  Report Type: 
  Country: None (occurrence: None)
  Receive Date: 20100728
  Receipt Date: 20100716
  Transmission Date: 20110219
  Serious: Yes (Death)
  Sender: FDA-Public Use
  Company Number: A0867505A

PATIENT
  Sex: Male

DRUGS (3)
  1. AVANDIA [Suspect]
     Dates: start: 20030212, end: 20090102
  2. AVANDAMET [Suspect]
     Dosage: 1TAB TWICE PER DAY
     Dates: end: 20090102
  3. AMARYL [Concomitant]
     Dates: start: 20030401, end: 20090102

REACTIONS (2)
  - DEATH [None]
  - PAIN IN EXTREMITY [None]
